FAERS Safety Report 5008466-3 (Version None)
Quarter: 2006Q2

REPORT INFORMATION
  Report Type: 
  Country: None (occurrence: None)
  Receive Date: 20060522
  Receipt Date: 20060522
  Transmission Date: 20061013
  Serious: Yes (Life-Threatening, Hospitalization, Congenital Anomaly, Other)
  Sender: FDA-Public Use
  Company Number: None

PATIENT
  Age: 1 Day
  Sex: Male
  Weight: 3.1752 kg

DRUGS (1)
  1. PROPYLTHIOURACIL [Suspect]
     Indication: HYPERTHYROIDISM
     Dates: start: 19990109, end: 19990116

REACTIONS (8)
  - APGAR SCORE ABNORMAL [None]
  - DRUG EXPOSURE DURING PREGNANCY [None]
  - FOETAL DISTRESS SYNDROME [None]
  - INDUCED LABOUR [None]
  - INTUSSUSCEPTION [None]
  - NEONATAL ASPIRATION [None]
  - VOMITING NEONATAL [None]
  - VOMITING PROJECTILE [None]
